FAERS Safety Report 17805470 (Version 2)
Quarter: 2020Q2

REPORT INFORMATION
  Report Type: Report from Study
  Country: None (occurrence: CO)
  Receive Date: 20200520
  Receipt Date: 20200616
  Transmission Date: 20200714
  Serious: No
  Sender: FDA-Public Use
  Company Number: CO-ABBVIE-20K-036-3411552-00

PATIENT
  Age: 64 Year
  Sex: Female

DRUGS (2)
  1. HUMIRA [Suspect]
     Active Substance: ADALIMUMAB
     Indication: RHEUMATOID ARTHRITIS
     Route: 058
     Dates: start: 20180914, end: 20200326
  2. PALIPERIDONE. [Concomitant]
     Active Substance: PALIPERIDONE
     Indication: OSTEOPOROSIS

REACTIONS (3)
  - Tachypnoea [Recovered/Resolved]
  - Suffocation feeling [Recovered/Resolved]
  - Arthralgia [Recovering/Resolving]

NARRATIVE: CASE EVENT DATE: 202005
